FAERS Safety Report 5420296-7 (Version None)
Quarter: 2007Q3

REPORT INFORMATION
  Report Type: 
  Country: None (occurrence: None)
  Receive Date: 20070820
  Receipt Date: 20001115
  Transmission Date: 20080115
  Serious: Yes (Hospitalization)
  Sender: FDA-Public Use
  Company Number: US-MERCK-99050923

PATIENT
  Age: 30 Day
  Sex: Male

DRUGS (5)
  1. DIURIL [Suspect]
     Indication: DIABETES INSIPIDUS
     Route: 048
     Dates: start: 19980101
  2. ZANTAC 150 [Concomitant]
     Route: 065
  3. POTASSIUM SUPPLEMENT (COMPOSITION UNSPECIFIED) [Concomitant]
     Route: 065
  4. PROPULSID [Concomitant]
     Route: 065
  5. POLY-VI-FLOR DROPS [Concomitant]
     Route: 065

REACTIONS (6)
  - DEHYDRATION [None]
  - FEEDING DISORDER NEONATAL [None]
  - GASTROINTESTINAL DISORDER [None]
  - GENERAL SYMPTOM [None]
  - MENTAL RETARDATION SEVERITY UNSPECIFIED [None]
  - VOMITING [None]
